FAERS Safety Report 7938422-4 (Version None)
Quarter: 2011Q4

REPORT INFORMATION
  Report Type: 
  Country: None (occurrence: None)
  Receive Date: 20111123
  Receipt Date: 20111109
  Transmission Date: 20120403
  Serious: Yes (Other)
  Sender: FDA-Public Use
  Company Number: US-JUTA GMBH-2011-18646

PATIENT
  Age: 38 Year
  Sex: Male

DRUGS (5)
  1. REMIFENTANIL [Suspect]
     Indication: ANAESTHESIA
     Dosage: 0.20 MCG/KG/M'
     Route: 065
  2. PROPOFOL [Suspect]
     Indication: ANAESTHESIA
     Dosage: 2 MG/KG, SINGLE
  3. CISATRACURIUM BESYLATE [Suspect]
     Indication: ANAESTHESIA
     Dosage: 14 MG FOLLOWED BY 2 MG BOLI
     Route: 065
  4. MORPHINE SULFATE [Suspect]
     Indication: ANAESTHESIA
     Dosage: 38 MG/48 H
     Route: 065
  5. SEVOFLURANE [Suspect]
     Indication: ANAESTHESIA
     Dosage: 1.5-2%
     Route: 065

REACTIONS (1)
  - ELECTROCARDIOGRAM ST SEGMENT ELEVATION [None]
